FAERS Safety Report 6578315-0 (Version None)
Quarter: 2010Q1

REPORT INFORMATION
  Report Type: 
  Country: None (occurrence: None)
  Receive Date: 20100211
  Receipt Date: 20100210
  Transmission Date: 20100710
  Serious: Yes (Hospitalization)
  Sender: FDA-Public Use
  Company Number: GB-PERRIGO-10GB006945

PATIENT
  Age: 15 Year
  Sex: Male

DRUGS (4)
  1. IBUPROFEN 16028/0013 200 MG [Suspect]
     Indication: DRUG USE FOR UNKNOWN INDICATION
     Dosage: 6400 MG, SINGLE
     Route: 048
     Dates: start: 20100111, end: 20100111
  2. IBUPROFEN 16028/0013 200 MG [Suspect]
     Dosage: UNKNOWN
     Route: 048
  3. CONCERTA [Suspect]
     Indication: ATTENTION DEFICIT/HYPERACTIVITY DISORDER
     Dosage: 832 MG, SINGLE
     Route: 048
     Dates: start: 20100111, end: 20100111
  4. CONCERTA [Suspect]
     Dosage: 72 MG, QD
     Route: 048
     Dates: start: 20050309, end: 20100111

REACTIONS (2)
  - MULTIPLE DRUG OVERDOSE [None]
  - SINUS TACHYCARDIA [None]
